FAERS Safety Report 24652234 (Version 2)
Quarter: 2024Q4

REPORT INFORMATION
  Report Type: Report from Study
  Country: CN (occurrence: CN)
  Receive Date: 20241122
  Receipt Date: 20241207
  Transmission Date: 20250115
  Serious: Yes (Hospitalization)
  Sender: ALEXION PHARMACEUTICALS
  Company Number: CN-ASTRAZENECA-202411GLO016792CN

PATIENT
  Age: 65 Year

DRUGS (12)
  1. OSIMERTINIB [Suspect]
     Active Substance: OSIMERTINIB
     Indication: Non-small cell lung cancer
     Dosage: 160 MILLIGRAM, Q2W
  2. OSIMERTINIB [Suspect]
     Active Substance: OSIMERTINIB
     Dosage: 160 MILLIGRAM, Q2W
     Route: 048
  3. OSIMERTINIB [Suspect]
     Active Substance: OSIMERTINIB
     Dosage: 160 MILLIGRAM, Q2W
  4. OSIMERTINIB [Suspect]
     Active Substance: OSIMERTINIB
     Dosage: 160 MILLIGRAM, Q2W
     Route: 048
  5. BECOTATUG [Suspect]
     Active Substance: BECOTATUG
     Indication: Non-small cell lung cancer
     Dosage: 6 MILLIGRAM/KILOGRAM, Q2W
     Route: 041
  6. BECOTATUG [Suspect]
     Active Substance: BECOTATUG
     Dosage: 6 MILLIGRAM/KILOGRAM, Q2W
  7. MINOCYCLINE HYDROCHLORIDE [Concomitant]
     Active Substance: MINOCYCLINE HYDROCHLORIDE
     Indication: Prophylaxis
     Dosage: 200 MILLIGRAM, BID
     Route: 048
  8. MINOCYCLINE HYDROCHLORIDE [Concomitant]
     Active Substance: MINOCYCLINE HYDROCHLORIDE
     Dosage: 200 MILLIGRAM, BID
  9. RESLIZUMAB [Concomitant]
     Active Substance: RESLIZUMAB
     Indication: Prophylaxis
     Dosage: 120 MILLIGRAM
     Route: 058
  10. RESLIZUMAB [Concomitant]
     Active Substance: RESLIZUMAB
     Dosage: 120 MILLIGRAM
  11. AMINOPHYLLINE\CHLORPHENIRAMINE MALEATE\METHOXYPHENAMINE HYDROCHLORIDE\ [Concomitant]
     Active Substance: AMINOPHYLLINE\CHLORPHENIRAMINE MALEATE\METHOXYPHENAMINE HYDROCHLORIDE\NOSCAPINE
     Indication: Cough
     Dosage: 2 CAPSULES
     Route: 048
  12. AMINOPHYLLINE\CHLORPHENIRAMINE MALEATE\METHOXYPHENAMINE HYDROCHLORIDE\ [Concomitant]
     Active Substance: AMINOPHYLLINE\CHLORPHENIRAMINE MALEATE\METHOXYPHENAMINE HYDROCHLORIDE\NOSCAPINE
     Dosage: 2 CAPSULES

REACTIONS (1)
  - Gastrointestinal disorder [Not Recovered/Not Resolved]
